FAERS Safety Report 25113988 (Version 1)
Quarter: 2025Q1

REPORT INFORMATION
  Report Type: Spontaneous
  Country: EU (occurrence: EU)
  Receive Date: 20250324
  Receipt Date: 20250324
  Transmission Date: 20250408
  Serious: Yes (Other)
  Sender: SEPTODONT
  Company Number: EU-SEPTODONT-2025019504

PATIENT

DRUGS (1)
  1. ARTICAINE HYDROCHLORIDE\EPINEPHRINE HYDROCHLORIDE [Suspect]
     Active Substance: ARTICAINE HYDROCHLORIDE\EPINEPHRINE HYDROCHLORIDE
     Indication: Dental care
     Route: 050

REACTIONS (3)
  - Abscess oral [Unknown]
  - Mucosal inflammation [Unknown]
  - Toothache [Unknown]
